FAERS Safety Report 5221986-1 (Version None)
Quarter: 2007Q1

REPORT INFORMATION
  Report Type: 
  Country: None (occurrence: None)
  Receive Date: 20070129
  Receipt Date: 20060801
  Transmission Date: 20070707
  Serious: No
  Sender: FDA-Public Use
  Company Number: US-GLAXOSMITHKLINE-A0595958A

PATIENT
  Age: 63 Year
  Sex: Female
  Weight: 81.8 kg

DRUGS (2)
  1. WELLBUTRIN [Suspect]
     Indication: DEPRESSION
     Route: 048
     Dates: start: 20060201
  2. BUPROPION HYDROCHLORIDE [Suspect]
     Indication: DEPRESSION
     Route: 048

REACTIONS (4)
  - AGITATION [None]
  - DISCOMFORT [None]
  - DIZZINESS [None]
  - INSOMNIA [None]
